FAERS Safety Report 17089428 (Version 1)
Quarter: 2019Q4

REPORT INFORMATION
  Report Type: Spontaneous
  Country: US (occurrence: US)
  Receive Date: 20191128
  Receipt Date: 20191128
  Transmission Date: 20200122
  Serious: No
  Sender: FDA-Public Use
  Company Number: US-BAUSCH-BL-2019-057517

PATIENT
  Sex: Female

DRUGS (1)
  1. TIMOLOL MALEATE OPHTHALMIC SOLUTION USP 0.5% [Suspect]
     Active Substance: TIMOLOL MALEATE
     Indication: PRODUCT USED FOR UNKNOWN INDICATION
     Route: 047

REACTIONS (2)
  - Product quality issue [Unknown]
  - Eye irritation [Unknown]
